FAERS Safety Report 8379956 (Version 2)
Quarter: 2013Q1

REPORT INFORMATION
  Report Type: Report from Study
  Country: US (occurrence: US)
  Receive Date: 20120129
  Receipt Date: 20130131
  Transmission Date: 20140127
  Serious: No
  Sender: FDA-Public Use
  Company Number: US-ABBOTT-11P-163-0877299-00

PATIENT
  Age: 48 None
  Sex: 0
  Weight: 104.42 kg

DRUGS (7)
  1. HUMIRA [Suspect]
     Indication: PSORIATIC ARTHROPATHY
     Route: 058
     Dates: start: 2008
  2. AMBIEN [Concomitant]
     Indication: INSOMNIA
     Dosage: AT BEDTIME
  3. LORTAB [Concomitant]
     Indication: PAIN
     Dosage: MAX 4 TABLETS PER DAY
     Route: 048
  4. XANAX [Concomitant]
     Dosage: 1/2 IN AM, 1/2 IN PM
     Route: 048
  5. COQ10 [Concomitant]
     Indication: CARDIOVASCULAR EVENT PROPHYLAXIS
  6. OMEGA 3 FISH OIL [Concomitant]
     Indication: PROPHYLAXIS
  7. OMEGA 3 FISH OIL [Concomitant]
     Indication: PROPHYLAXIS

REACTIONS (13)
  - Vitamin B12 decreased [Unknown]
  - Arthritis [Not Recovered/Not Resolved]
  - Upper respiratory tract infection [Recovered/Resolved]
  - Ear infection [Recovered/Resolved]
  - Injection site pain [Not Recovered/Not Resolved]
  - Psoriasis [Not Recovered/Not Resolved]
  - Arthralgia [Not Recovered/Not Resolved]
  - Psoriasis [Not Recovered/Not Resolved]
  - Stress [Unknown]
  - Hypertension [Unknown]
  - Blood cholesterol increased [Unknown]
  - Vitamin D decreased [Unknown]
  - Insomnia [Unknown]
